FAERS Safety Report 24145266 (Version 1)
Quarter: 2024Q3

REPORT INFORMATION
  Report Type: Spontaneous
  Country: GB (occurrence: GB)
  Receive Date: 20240729
  Receipt Date: 20240729
  Transmission Date: 20241016
  Serious: Yes (Other)
  Sender: AMGEN
  Company Number: None

PATIENT
  Age: 76 Year

DRUGS (20)
  1. ARANESP [Suspect]
     Active Substance: DARBEPOETIN ALFA
     Indication: Product used for unknown indication
     Dosage: EVERY 4/5230MICROGRAMS/0.3ML SOLUTION FOR INJECTION PRE-FILLED SYRINGES
     Route: 065
  2. ARANESP [Suspect]
     Active Substance: DARBEPOETIN ALFA
     Dosage: RESTARTED
     Route: 065
     Dates: start: 20240207
  3. VITAMIN A [Concomitant]
     Active Substance: VITAMIN A
     Dosage: ONE TO BE TAKEN ONCE DAILY AS PER CLINIC
     Route: 065
  4. OMEPRAZOLE [Concomitant]
     Active Substance: OMEPRAZOLE
     Dosage: 20 MG GASTRO - RESISTANT CAPSULES ONE TO BE TAKEN EACH DAY - TAKES PRN
     Route: 065
  5. ALFACALCIDOL KENT [Concomitant]
     Dosage: 250 NANOGRAM CAPSULES ONE TO BE TAKEN THREE TIMES WEEKLY - MONDAY, WEDNESDAY, FRIDAY
  6. DEXTROSE [Concomitant]
     Active Substance: DEXTROSE\DEXTROSE MONOHYDRATE
     Dosage: POWDER FOR ORAL USE BP 1980 FOR RECONSTITUTION OF ST MARK^S SOLUTION
  7. SODIUM BICARBONATE [Concomitant]
     Active Substance: SODIUM BICARBONATE
     Dosage: 500 MG CAPSULES TWO TO BE TAKEN THREE TIMES A DAY
  8. BECLOMETHASONE DIPROPIONATE\FORMOTEROL FUMARATE\GLYCOPYRROLATE [Concomitant]
     Active Substance: BECLOMETHASONE DIPROPIONATE\FORMOTEROL FUMARATE\GLYCOPYRROLATE
     Dosage: 87 MICROGRAMS / DOSE / 5 MICROGRAMS / DOSE / 9 MICROGRAMS / DOSE INHALERTWO PUFFS TO BE INHALED TWIC
     Route: 055
  9. CALCIUM CARBONATE\CHOLECALCIFEROL [Concomitant]
     Active Substance: CALCIUM CARBONATE\CHOLECALCIFEROL
     Dosage: DISSOLVE 1500 MG / 400 UNIT EFFERVESCENT TABLETS TAKE ONE TABLET ONCE A DAY
  10. ACENOCOUMAROL [Concomitant]
     Active Substance: ACENOCOUMAROL
     Dosage: 1 MG TABLETS TAKE AS PRESCRIBED IN ANTICOAGULANT TREATMENT BOOK - 0.5MG ALTERNATE DAYS
  11. DICLOFENAC DIETHYLAMINE [Concomitant]
     Active Substance: DICLOFENAC DIETHYLAMINE
     Dosage: 1.16% GEL APPLY THREE OR FOUR TIMES A DAY TO SITE OF PAIN
  12. ACETAMINOPHEN [Concomitant]
     Active Substance: ACETAMINOPHEN
     Dosage: 500 MG SOLUBLE TABLETS TWO TO BE TAKEN EVERY 4 - 6 HOURS UP TO FOUR TIMES A DAY
  13. LOPERAMIDE [Concomitant]
     Active Substance: LOPERAMIDE
     Dosage: 2 MG CAPSULES FOUR TO BE TAKEN FOUR TIMES A DAY BEFORE FOOD
  14. CARBOCYSTEINE [Concomitant]
     Active Substance: CARBOCYSTEINE
     Dosage: 375 MG CAPSULES TWO TO BE TAKEN THREE TIMES A DAY
  15. INVITA D3 [Concomitant]
     Dosage: 25,000 UNIT CAPSULES ONE A MONTH - TAKES ON 22ND OF EACH MONTH (HAD JANUARY^S DOSE)
  16. VENTOLIN [Concomitant]
     Active Substance: ALBUTEROL SULFATE
     Dosage: 100 MICROGRAMS / DOSE EVOHALER TWO PUFFS AS REQUIRED
  17. VITAMIN D3 [Concomitant]
     Active Substance: CHOLECALCIFEROL
     Dosage: ONE TO BE TAKEN ONCE DAILY AS PER CLINIC
  18. GAVISCON [Concomitant]
     Active Substance: ALUMINUM HYDROXIDE\MAGNESIUM CARBONATE
     Dosage: TWO 5 ML SPOONFULS THREE TIMES A DAYWITH FOOD AND HALF AN HOUR BEFORE BED - TAKES PRN
  19. GABAPENTIN [Concomitant]
     Active Substance: GABAPENTIN
     Dosage: 100 MG CAPSULES TWO TO BE TAKEN THREE TIMES A DAY
  20. ENOXAPARIN [Concomitant]
     Active Substance: ENOXAPARIN
     Dosage: UNK

REACTIONS (2)
  - Cerebrovascular accident [Unknown]
  - Infection [Unknown]
